FAERS Safety Report 6583020-0 (Version None)
Quarter: 2010Q1

REPORT INFORMATION
  Report Type: 
  Country: None (occurrence: None)
  Receive Date: 20100216
  Receipt Date: 20100127
  Transmission Date: 20100710
  Serious: Yes (Hospitalization)
  Sender: FDA-Public Use
  Company Number: US-JNJCH-2010003791

PATIENT
  Sex: Female

DRUGS (1)
  1. ROLAIDS TAB [Suspect]
     Indication: DRUG USE FOR UNKNOWN INDICATION
     Dosage: TEXT:UNSPECIFIED
     Route: 048

REACTIONS (4)
  - CHEST PAIN [None]
  - NAUSEA [None]
  - VERTIGO [None]
  - VOMITING [None]
